FAERS Safety Report 4861324-7 (Version None)
Quarter: 2005Q4

REPORT INFORMATION
  Report Type: 
  Country: None (occurrence: None)
  Receive Date: 20051216
  Receipt Date: 20051207
  Transmission Date: 20060501
  Serious: Yes (Hospitalization)
  Sender: FDA-Public Use
  Company Number: 200510855BFR

PATIENT
  Age: 51 Year
  Sex: Female

DRUGS (12)
  1. CIPROFLOXACIN HCL [Suspect]
     Dates: start: 20051024, end: 20051102
  2. CEFIXIME CHEWABLE [Suspect]
     Dosage: ORAL
     Route: 048
     Dates: start: 20051028, end: 20051102
  3. STILNOX [Concomitant]
  4. ZOLOFT [Concomitant]
  5. TAXOTERE [Concomitant]
  6. HERCEPTIN [Concomitant]
  7. TAZOCILLINE [Suspect]
     Dosage: 3 DF, TOTAL DAILY, INTRAVENOUS
     Route: 042
     Dates: start: 20051102, end: 20051104
  8. AMIKIN [Suspect]
     Dosage: 1 DF, TOTAL DAILY, INTRAVENOUS
     Route: 042
     Dates: start: 20051102, end: 20051103
  9. LEVOTHYROXINE SODIUM [Concomitant]
  10. DEPAKENE [Concomitant]
  11. ALEPSAL [Concomitant]
  12. LEXOMIL [Concomitant]

REACTIONS (3)
  - ERYTHEMA [None]
  - EYELID OEDEMA [None]
  - OEDEMA PERIPHERAL [None]
